FAERS Safety Report 8405612 (Version 28)
Quarter: 2015Q3

REPORT INFORMATION
  Report Type: Spontaneous
  Country: CA (occurrence: CA)
  Receive Date: 20120214
  Receipt Date: 20150924
  Transmission Date: 20151125
  Serious: Yes (Other)
  Sender: FDA-Public Use
  Company Number: CA-ROCHE-1038833

PATIENT
  Age: 47 Year
  Sex: Female
  Weight: 81 kg

DRUGS (19)
  1. XOLAIR [Suspect]
     Active Substance: OMALIZUMAB
     Route: 058
     Dates: start: 20130605
  2. XOLAIR [Suspect]
     Active Substance: OMALIZUMAB
     Route: 058
     Dates: start: 20120229
  3. XOLAIR [Suspect]
     Active Substance: OMALIZUMAB
     Route: 058
     Dates: start: 20120328
  4. XOLAIR [Suspect]
     Active Substance: OMALIZUMAB
     Route: 058
     Dates: start: 20130213
  5. XOLAIR [Suspect]
     Active Substance: OMALIZUMAB
     Route: 058
     Dates: start: 20130313
  6. XOLAIR [Suspect]
     Active Substance: OMALIZUMAB
     Route: 058
     Dates: start: 20130424
  7. XOLAIR [Suspect]
     Active Substance: OMALIZUMAB
     Route: 058
     Dates: start: 20140606
  8. SINGULAIR [Concomitant]
     Active Substance: MONTELUKAST SODIUM
  9. XOLAIR [Suspect]
     Active Substance: OMALIZUMAB
     Route: 058
     Dates: start: 20140520
  10. XOLAIR [Suspect]
     Active Substance: OMALIZUMAB
     Route: 058
     Dates: start: 20140813
  11. XOLAIR [Suspect]
     Active Substance: OMALIZUMAB
     Route: 058
     Dates: start: 20120104
  12. XOLAIR [Suspect]
     Active Substance: OMALIZUMAB
     Route: 058
     Dates: start: 20140422
  13. XOLAIR [Suspect]
     Active Substance: OMALIZUMAB
     Route: 058
     Dates: start: 20150630
  14. SYMBICORT [Concomitant]
     Active Substance: BUDESONIDE\FORMOTEROL FUMARATE DIHYDRATE
  15. XOLAIR [Suspect]
     Active Substance: OMALIZUMAB
     Indication: ASTHMA
     Route: 058
     Dates: start: 20110914
  16. APO-SALVENT [Concomitant]
     Active Substance: ALBUTEROL
  17. XOLAIR [Suspect]
     Active Substance: OMALIZUMAB
     Route: 058
     Dates: start: 20130410
  18. XOLAIR [Suspect]
     Active Substance: OMALIZUMAB
     Route: 058
     Dates: start: 20140311
  19. XOLAIR [Suspect]
     Active Substance: OMALIZUMAB
     Route: 058
     Dates: start: 20140325

REACTIONS (31)
  - Peripheral swelling [Unknown]
  - Paraesthesia [Unknown]
  - Sinus congestion [Unknown]
  - Blood pressure fluctuation [Unknown]
  - Injection site haemorrhage [Unknown]
  - Respiratory disorder [Unknown]
  - Oropharyngeal pain [Unknown]
  - Bite [Unknown]
  - Injection site pain [Recovered/Resolved]
  - Cough [Not Recovered/Not Resolved]
  - Discomfort [Recovered/Resolved]
  - Respiratory tract congestion [Unknown]
  - Stress [Unknown]
  - Blood pressure increased [Unknown]
  - Malaise [Unknown]
  - Productive cough [Recovering/Resolving]
  - Road traffic accident [Unknown]
  - Injection site paraesthesia [Unknown]
  - Ear infection [Unknown]
  - Weight increased [Unknown]
  - Bronchitis [Unknown]
  - Pain [Recovered/Resolved]
  - Anxiety [Unknown]
  - Spinal column injury [Unknown]
  - Nasal congestion [Unknown]
  - Sinusitis [Unknown]
  - Fall [Unknown]
  - Lower respiratory tract infection [Unknown]
  - Nasopharyngitis [Unknown]
  - Breath sounds abnormal [Unknown]
  - Wheezing [Unknown]

NARRATIVE: CASE EVENT DATE: 20111012
